FAERS Safety Report 5960779-4 (Version None)
Quarter: 2008Q4

REPORT INFORMATION
  Report Type: 
  Country: None (occurrence: None)
  Receive Date: 20081120
  Receipt Date: 20081111
  Transmission Date: 20090506
  Serious: Yes (Hospitalization)
  Sender: FDA-Public Use
  Company Number: PHHO2007DE11582

PATIENT
  Sex: Female
  Weight: 75 kg

DRUGS (3)
  1. ZOLEDRONATE T29581+SOLINJ+BM [Suspect]
     Indication: BREAST CANCER
     Dosage: 6MG EVERY 3 MONTHS
     Route: 042
     Dates: start: 20070222
  2. CHEMOTHERAPEUTICS NOS [Interacting]
  3. ANTIEPILEPTICS [Interacting]

REACTIONS (3)
  - DRUG INTERACTION [None]
  - EPILEPSY [None]
  - MUSCULOSKELETAL PAIN [None]
